FAERS Safety Report 14551795 (Version 5)
Quarter: 2018Q1

REPORT INFORMATION
  Report Type: Report from Study
  Country: RU (occurrence: RU)
  Receive Date: 20180220
  Receipt Date: 20180321
  Transmission Date: 20180509
  Serious: Yes (Other)
  Sender: FDA-Public Use
  Company Number: RU-AMGEN-RUSCT2018020323

PATIENT
  Age: 35 Year
  Sex: Male
  Weight: 109.1 kg

DRUGS (8)
  1. METHOTREXATE. [Suspect]
     Active Substance: METHOTREXATE
     Indication: PSORIATIC ARTHROPATHY
     Dosage: UNK
     Route: 065
     Dates: start: 20170306
  2. ETANERCEPT [Suspect]
     Active Substance: ETANERCEPT
     Indication: PSORIATIC ARTHROPATHY
     Dosage: 1 ML, UNK
     Route: 058
     Dates: start: 20170823
  3. PREFILLED SYRINGE [Suspect]
     Active Substance: UNSPECIFIED INGREDIENT
     Indication: PSORIATIC ARTHROPATHY
     Dosage: UNK
     Route: 065
     Dates: start: 20170306
  4. FOLIC ACID. [Concomitant]
     Active Substance: FOLIC ACID
     Dosage: 5 MG, UNK
     Dates: start: 20170307
  5. OMEPRAZOL [Concomitant]
     Active Substance: OMEPRAZOLE
     Dosage: 20 MG, UNK
     Route: 048
     Dates: start: 20130529
  6. TREXALL [Suspect]
     Active Substance: METHOTREXATE SODIUM
     Indication: PSORIATIC ARTHROPATHY
     Dosage: 8 UNK, UNK
     Route: 048
     Dates: start: 20170828
  7. HEPTRAL [Concomitant]
     Active Substance: ADEMETIONINE
     Dosage: 400-1600 MG, QD
     Route: 048
     Dates: start: 20170828
  8. NIMESULID [Concomitant]
     Active Substance: NIMESULIDE
     Dosage: 200 MG, UNK
     Route: 048
     Dates: start: 20130529

REACTIONS (2)
  - Hyperbilirubinaemia [Unknown]
  - Alanine aminotransferase increased [Unknown]

NARRATIVE: CASE EVENT DATE: 20180206
